FAERS Safety Report 16103256 (Version 2)
Quarter: 2019Q1

REPORT INFORMATION
  Report Type: Spontaneous
  Country: VN (occurrence: VN)
  Receive Date: 20190322
  Receipt Date: 20190327
  Transmission Date: 20190418
  Serious: Yes (Other)
  Sender: FDA-Public Use
  Company Number: VN-ASTELLAS-2019US011502

PATIENT
  Age: 47 Year
  Sex: Male

DRUGS (1)
  1. ERLOTINIB [Suspect]
     Active Substance: ERLOTINIB
     Indication: LUNG CANCER METASTATIC
     Route: 048
     Dates: start: 2018

REACTIONS (3)
  - Pneumothorax [Unknown]
  - Transaminases increased [Recovered/Resolved]
  - Rash [Not Recovered/Not Resolved]
